FAERS Safety Report 10584169 (Version 1)
Quarter: 2014Q4

REPORT INFORMATION
  Report Type: Report from Study
  Country: US (occurrence: None)
  Receive Date: 20141112
  Receipt Date: 20141112
  Transmission Date: 20150529
  Serious: Yes (Hospitalization)
  Sender: FDA-Public Use
  Company Number: US-2014-000003

PATIENT
  Age: 54 Year
  Sex: Female
  Weight: 94.3 kg

DRUGS (11)
  1. ERIBULIN MESYLATE INJECTION, MG/M^2 [Suspect]
     Active Substance: ERIBULIN MESYLATE
     Indication: BREAST CANCER
     Route: 042
     Dates: start: 20141022
  2. EXCEDRIN /00110301/ (ACETYLSALICYLIC ACID, CAFFEINE, SALICYLAMIDE) [Concomitant]
  3. ZOFRAN /00955301/ (ONDANSETRON) [Concomitant]
  4. MULTIVITAMIN /07504101/ (VITAMIN NOS) [Concomitant]
  5. CALCIUM (CALCIUM) [Concomitant]
     Active Substance: CALCIUM
  6. IBUPROFEN (IBUPROFEN) [Concomitant]
     Active Substance: IBUPROFEN
  7. VITAMIN D3 [Concomitant]
     Active Substance: CHOLECALCIFEROL
  8. FILGRASTIM (FILGRASTIM) [Concomitant]
     Active Substance: FILGRASTIM
  9. MIFEPRISTONE [Suspect]
     Active Substance: MIFEPRISTONE
     Indication: BREAST CANCER
     Route: 048
     Dates: start: 20141015
  10. DIPHENHYDRAMINE /00000402/ DIPHENHYDRAMINE HYDROCHLORIDE [Concomitant]
  11. CALCIUM CARBONATE (CALCIUM CARBONATE) [Concomitant]

REACTIONS (1)
  - Febrile neutropenia [None]

NARRATIVE: CASE EVENT DATE: 20141023
